FAERS Safety Report 23656310 (Version 1)
Quarter: 2024Q1

REPORT INFORMATION
  Report Type: Spontaneous
  Country: GB (occurrence: GB)
  Receive Date: 20240321
  Receipt Date: 20240321
  Transmission Date: 20240409
  Serious: Yes (Other)
  Sender: FDA-Public Use
  Company Number: GB-MHRA-MED-202307201431498270-DSJVT

PATIENT
  Age: 69 Year
  Sex: Male
  Weight: 124 kg

DRUGS (8)
  1. DULCOLAX STOOL SOFTENER [Suspect]
     Active Substance: DOCUSATE SODIUM
     Indication: Constipation
     Dates: start: 20230718
  2. HIPREX [Concomitant]
     Active Substance: METHENAMINE HIPPURATE
     Indication: Secondary progressive multiple sclerosis
  3. AMITRIPTYLINE [Concomitant]
     Active Substance: AMITRIPTYLINE
     Indication: Secondary progressive multiple sclerosis
  4. AMLODIPINE [Concomitant]
     Active Substance: AMLODIPINE BESYLATE
     Indication: Secondary progressive multiple sclerosis
  5. PREGABALIN [Concomitant]
     Active Substance: PREGABALIN
     Indication: Secondary progressive multiple sclerosis
  6. BACLOFEN [Concomitant]
     Active Substance: BACLOFEN
     Indication: Secondary progressive multiple sclerosis
  7. ATORVASTATIN [Concomitant]
     Active Substance: ATORVASTATIN
     Indication: Secondary progressive multiple sclerosis
  8. LOSARTAN [Concomitant]
     Active Substance: LOSARTAN
     Indication: Secondary progressive multiple sclerosis

REACTIONS (3)
  - Dysphagia [Recovering/Resolving]
  - Choking [Recovered/Resolved]
  - Throat irritation [Recovering/Resolving]

NARRATIVE: CASE EVENT DATE: 20230718
